FAERS Safety Report 9778635 (Version 3)
Quarter: 2013Q4

REPORT INFORMATION
  Report Type: Spontaneous
  Country: US (occurrence: US)
  Receive Date: 20131223
  Receipt Date: 20131224
  Transmission Date: 20140711
  Serious: Yes (Other)
  Sender: FDA-Public Use
  Company Number: US-DRREDDYS-USA/USA/13/0036338

PATIENT
  Age: 47 Year
  Sex: Male
  Weight: 80 kg

DRUGS (3)
  1. ZENATANE [Suspect]
     Indication: ACNE
     Route: 065
     Dates: start: 20130506
  2. ZENATANE [Suspect]
     Route: 065
     Dates: start: 20130531
  3. ZENATANE [Suspect]
     Route: 065

REACTIONS (2)
  - Pneumonia [Unknown]
  - Chest pain [Unknown]
